FAERS Safety Report 11629598 (Version 2)
Quarter: 2015Q4

REPORT INFORMATION
  Report Type: Report from Study
  Country: MX (occurrence: MX)
  Receive Date: 20151014
  Receipt Date: 20151022
  Transmission Date: 20160304
  Serious: Yes (Hospitalization, Other)
  Sender: FDA-Public Use
  Company Number: MX-INCYTE CORPORATION-2015IN005109

PATIENT
  Age: 76 Year
  Sex: Male
  Weight: 73 kg

DRUGS (4)
  1. JAKAFI [Suspect]
     Active Substance: RUXOLITINIB
     Indication: MYELOFIBROSIS
     Dosage: 4 DF OF 5 MG, QD (2 IN THE MORNING AND 2 PILLS IN THE NIGHT)
     Route: 065
     Dates: start: 2013
  2. ASPIRIN PROTECT [Concomitant]
     Active Substance: ASPIRIN
     Indication: PRODUCT USED FOR UNKNOWN INDICATION
     Dosage: 1 OT, QW3 (MONDAY, WEDNESDAY AND FRIDAY)
     Route: 048
  3. METICORTEN [Concomitant]
     Active Substance: PREDNISONE
     Indication: PRODUCT USED FOR UNKNOWN INDICATION
     Dosage: 80 MG, QD
     Route: 048
     Dates: start: 20150912
  4. BORIC ACID [Concomitant]
     Active Substance: BORIC ACID
     Indication: PRODUCT USED FOR UNKNOWN INDICATION
     Route: 065

REACTIONS (3)
  - Skin cancer [Unknown]
  - Peripheral swelling [Recovered/Resolved]
  - Lower extremity mass [Recovered/Resolved]

NARRATIVE: CASE EVENT DATE: 201509
